FAERS Safety Report 21624092 (Version 1)
Quarter: 2022Q4

REPORT INFORMATION
  Report Type: Report from Study
  Country: US (occurrence: US)
  Receive Date: 20221121
  Receipt Date: 20221121
  Transmission Date: 20230113
  Serious: No
  Sender: FDA-Public Use
  Company Number: US-ABBVIE-4158328

PATIENT
  Sex: Female

DRUGS (5)
  1. HUMIRA [Suspect]
     Active Substance: ADALIMUMAB
     Indication: Rheumatoid arthritis
     Dosage: CITRATE FREE
     Route: 058
  2. HUMIRA [Suspect]
     Active Substance: ADALIMUMAB
     Dosage: CITRATE FREE
     Route: 058
  3. Moderna [Concomitant]
     Indication: COVID-19 immunisation
     Dosage: 1ST DOSE, ADMINISTERED ONCE
     Route: 030
     Dates: start: 20210222, end: 20210222
  4. Moderna [Concomitant]
     Indication: COVID-19 immunisation
     Dosage: 2ND DOSE, ADMINISTERED ONCE
     Route: 030
     Dates: start: 20210324, end: 20210324
  5. Moderna [Concomitant]
     Indication: COVID-19 immunisation
     Dosage: 3RD DOSE, ADMINISTERED ONCE
     Route: 030
     Dates: start: 20211108, end: 20211108

REACTIONS (1)
  - Pain [Unknown]
